FAERS Safety Report 5166930-0 (Version None)
Quarter: 2006Q4

REPORT INFORMATION
  Report Type: 
  Country: None (occurrence: None)
  Receive Date: 20061207
  Receipt Date: 20061110
  Transmission Date: 20070319
  Serious: Yes (Hospitalization)
  Sender: FDA-Public Use
  Company Number: US-ELI_LILLY_AND_COMPANY-US200611002209

PATIENT
  Age: 76 Year
  Sex: Female

DRUGS (1)
  1. FORTEO [Suspect]
     Indication: OSTEOPOROSIS
     Dates: start: 20020701, end: 20040701

REACTIONS (5)
  - COMPRESSION FRACTURE [None]
  - FALL [None]
  - MUSCLE STRAIN [None]
  - MYALGIA [None]
  - ROAD TRAFFIC ACCIDENT [None]
